FAERS Safety Report 11789385 (Version 2)
Quarter: 2016Q1

REPORT INFORMATION
  Report Type: Spontaneous
  Country: US (occurrence: US)
  Receive Date: 20151201
  Receipt Date: 20160107
  Transmission Date: 20160525
  Serious: No
  Sender: FDA-Public Use
  Company Number: US-PFIZER INC-2015398871

PATIENT
  Age: 69 Year
  Sex: Male

DRUGS (1)
  1. SUTENT [Suspect]
     Active Substance: SUNITINIB MALATE
     Indication: NEOPLASM MALIGNANT
     Dosage: 37.5 MG CYCLIC (ONCE DAILY EVERY DAY FOR 1 MONTH)
     Route: 048
     Dates: start: 20150806, end: 20151018

REACTIONS (4)
  - Disease progression [Unknown]
  - Fall [Unknown]
  - Neoplasm malignant [Unknown]
  - Pathological fracture [Unknown]

NARRATIVE: CASE EVENT DATE: 2015
